FAERS Safety Report 6317398-X (Version None)
Quarter: 2009Q3

REPORT INFORMATION
  Report Type: 
  Country: None (occurrence: None)
  Receive Date: 20090821
  Receipt Date: 20090817
  Transmission Date: 20100115
  Serious: Yes (Hospitalization)
  Sender: FDA-Public Use
  Company Number: FR-WYE-G03877509

PATIENT
  Sex: Male
  Weight: 72 kg

DRUGS (7)
  1. TORISEL [Suspect]
     Indication: METASTATIC RENAL CELL CARCINOMA
     Route: 042
     Dates: start: 20090526, end: 20090526
  2. PROSCAR [Concomitant]
     Indication: PROSTATIC ADENOMA
     Dosage: 10 MG TOTAL DAILY
     Route: 048
     Dates: start: 20070101
  3. SOLUPRED [Concomitant]
     Indication: PAIN
     Dosage: 20 MG TOTAL DAILY
     Route: 048
     Dates: start: 20090101
  4. ALDACTONE [Concomitant]
     Indication: HYPERTENSION
     Dosage: 75 MG TOTAL DAILY
     Route: 048
     Dates: start: 20070101
  5. CONTRAMAL [Concomitant]
     Indication: PAIN
     Dosage: 200 MG TOTAL DAILY
     Route: 048
     Dates: start: 20090101
  6. XATRAL [Concomitant]
     Indication: PROSTATIC ADENOMA
     Dosage: 10 MG
     Route: 048
     Dates: start: 20070101
  7. ATENOLOL [Concomitant]
     Indication: HYPERTENSION
     Dosage: 50 MG TOTAL DAILY
     Route: 048
     Dates: start: 20070101

REACTIONS (8)
  - CONFUSIONAL STATE [None]
  - DIARRHOEA [None]
  - DIPLOPIA [None]
  - DISEASE PROGRESSION [None]
  - DISORIENTATION [None]
  - HALLUCINATION, VISUAL [None]
  - HEADACHE [None]
  - STAPHYLOCOCCAL INFECTION [None]
